FAERS Safety Report 15842595 (Version 1)
Quarter: 2018Q4

REPORT INFORMATION
  Report Type: Spontaneous
  Country: US (occurrence: US)
  Receive Date: 20181224
  Receipt Date: 20181224
  Transmission Date: 20190205
  Serious: No
  Sender: FDA-Public Use
  Company Number: None

PATIENT
  Age: 74 Year
  Sex: Male

DRUGS (12)
  1. HYDROCHLOROTHIAZIDE. [Concomitant]
     Active Substance: HYDROCHLOROTHIAZIDE
  2. TAMSULOSIN [Concomitant]
     Active Substance: TAMSULOSIN
  3. LISINOPRIL. [Concomitant]
     Active Substance: LISINOPRIL
  4. HYDREA [Concomitant]
     Active Substance: HYDROXYUREA
  5. ASPIRIN. [Concomitant]
     Active Substance: ASPIRIN
  6. ULTRAM [Concomitant]
     Active Substance: TRAMADOL HYDROCHLORIDE
  7. CASTOR OIL. [Concomitant]
     Active Substance: CASTOR OIL
  8. ESTER C [Concomitant]
     Active Substance: ASCORBIC ACID
  9. ALEVE [Concomitant]
     Active Substance: NAPROXEN SODIUM
  10. DILTIAZEM. [Concomitant]
     Active Substance: DILTIAZEM
  11. HARVONI [Suspect]
     Active Substance: LEDIPASVIR\SOFOSBUVIR
     Indication: HEPATITIS C
     Route: 048
  12. PROBIOTIC [Concomitant]
     Active Substance: PROBIOTICS NOS

REACTIONS (2)
  - Therapy non-responder [None]
  - Constipation [None]

NARRATIVE: CASE EVENT DATE: 20181221
